FAERS Safety Report 18964168 (Version 1)
Quarter: 2021Q1

REPORT INFORMATION
  Report Type: Spontaneous
  Country: US (occurrence: US)
  Receive Date: 20210303
  Receipt Date: 20210303
  Transmission Date: 20210420
  Serious: No
  Sender: FDA-Public Use
  Company Number: US-AMNEAL PHARMACEUTICALS-2020-AMRX-02234

PATIENT
  Age: 55 Year
  Sex: Male
  Weight: 78 kg

DRUGS (34)
  1. GOCOVRI [Suspect]
     Active Substance: AMANTADINE
     Indication: PARKINSON^S DISEASE
     Dosage: 274 MILLIGRAM, BEDTIME, INCREASE DOSE
     Route: 048
     Dates: start: 20181106
  2. REQUIP [Concomitant]
     Active Substance: ROPINIROLE HYDROCHLORIDE
     Indication: PARKINSON^S DISEASE
     Dosage: 1 TABLETS, 4X/DAY, AT 7 AM, 12PM, 4.30PM, 9PM
     Route: 065
  3. TYLENOL [Concomitant]
     Active Substance: ACETAMINOPHEN
     Indication: PRODUCT USED FOR UNKNOWN INDICATION
     Dosage: 500 MG (EXTRA STRENGTH), 2?500MG AS NEEDED
     Route: 065
  4. VITAMIN B12 W/VITAMIN B6/FOLIC ACID [Concomitant]
     Indication: SUPPLEMENTATION THERAPY
     Dosage: 1 DOSAGE FORM, 1000MCG/400MCG/2MG, DAILY (7AM)
     Route: 065
  5. MELATONIN [Concomitant]
     Active Substance: MELATONIN
     Indication: SUPPLEMENTATION THERAPY
     Dosage: 2.5 MG, BEDTIME, AT 11PM
     Route: 065
  6. FEXOFENADINE [Concomitant]
     Active Substance: FEXOFENADINE HYDROCHLORIDE
     Indication: PRODUCT USED FOR UNKNOWN INDICATION
     Dosage: UNK
     Route: 065
     Dates: start: 201811, end: 2018
  7. RYTARY [Suspect]
     Active Substance: CARBIDOPA\LEVODOPA
     Indication: PARKINSON^S DISEASE
     Dosage: 9 CAPSULES, QD
     Route: 065
     Dates: start: 201501
  8. GOCOVRI [Suspect]
     Active Substance: AMANTADINE
     Indication: DYSKINESIA
     Dosage: 137 MILLIGRAM, BEDTIME
     Route: 048
     Dates: start: 20181030, end: 20181105
  9. TYLENOL [Concomitant]
     Active Substance: ACETAMINOPHEN
     Dosage: UNK
     Route: 065
  10. COQ10 [ASCORBIC ACID;BETACAROTENE;CUPRIC OXIDE;MANGANESE SULFATE;SELEN [Concomitant]
     Indication: MUSCLE DISORDER
  11. FEXOFENADINE [Concomitant]
     Active Substance: FEXOFENADINE HYDROCHLORIDE
     Dosage: UNK
     Route: 065
     Dates: start: 20190201
  12. RYTARY [Suspect]
     Active Substance: CARBIDOPA\LEVODOPA
     Dosage: 8 CAPSULES, QD
     Route: 065
     Dates: start: 20200409
  13. FLOMAX [Concomitant]
     Active Substance: TAMSULOSIN HYDROCHLORIDE
     Indication: PROSTATOMEGALY
     Dosage: 1 CAPSULES, BEDTIME, 30 MIN AFTER DINNER (8PM)
     Route: 065
  14. VITAMIN B12 W/VITAMIN B6/FOLIC ACID [Concomitant]
     Indication: VITAMIN SUPPLEMENTATION
  15. VERAPAMIL HYDROCHLOIRDE [Concomitant]
     Active Substance: VERAPAMIL HYDROCHLORIDE
     Indication: HYPERTENSION
     Dosage: 1 CAPSULES, DAILY, AT 12 PM
     Route: 065
  16. NIZORAL [Concomitant]
     Active Substance: KETOCONAZOLE
     Indication: ECZEMA
     Dosage: SHAMPOO SCALP TWICE WEEKLY
     Route: 065
  17. BENADRYL [Concomitant]
     Active Substance: DIPHENHYDRAMINE HYDROCHLORIDE
     Indication: PRODUCT USED FOR UNKNOWN INDICATION
     Dosage: ONLY TAKE DURING THE DAY (NOT WITH GOCOVRI) AS NEEDED
     Route: 065
  18. RYTARY [Suspect]
     Active Substance: CARBIDOPA\LEVODOPA
     Dosage: 8 CAPSULES, QD
     Route: 065
     Dates: end: 20200404
  19. ALPRAZOLAM. [Concomitant]
     Active Substance: ALPRAZOLAM
     Indication: PRODUCT USED FOR UNKNOWN INDICATION
     Dosage: UNK
     Route: 065
  20. VITAMIN D3 [Concomitant]
     Active Substance: CHOLECALCIFEROL
     Indication: SUPPLEMENTATION THERAPY
     Dosage: 2000 INTERNATIONAL UNIT, 1X/DAY, AT 12PM
     Route: 065
  21. MELATONIN [Concomitant]
     Active Substance: MELATONIN
     Indication: INSOMNIA
  22. RYTARY [Suspect]
     Active Substance: CARBIDOPA\LEVODOPA
     Dosage: 9 CAPSULES, QD
     Route: 065
     Dates: start: 20200405, end: 20200408
  23. ZOLOFT [Concomitant]
     Active Substance: SERTRALINE HYDROCHLORIDE
     Indication: DEPRESSION
     Dosage: 1 TABLETS, 1X/DAY,AT 7 AM
     Route: 065
  24. ASPIRIN. [Concomitant]
     Active Substance: ASPIRIN
     Indication: ANTICOAGULANT THERAPY
     Dosage: 1 DOSAGE FORM, DAILY WITH FOOD
     Route: 065
  25. VITAMIN D3 [Concomitant]
     Active Substance: CHOLECALCIFEROL
     Indication: BONE DISORDER
  26. GOCOVRI [Suspect]
     Active Substance: AMANTADINE
     Dosage: 274 MILLIGRAM, BEDTIME
     Route: 048
     Dates: start: 20191106
  27. CLONAZEPAM. [Suspect]
     Active Substance: CLONAZEPAM
     Indication: INSOMNIA
     Dosage: 0.5 MG, COULD TAKE HALF TABLET, AS NEEDED
     Route: 065
  28. LIPITOR [Concomitant]
     Active Substance: ATORVASTATIN CALCIUM
     Indication: BLOOD CHOLESTEROL INCREASED
     Dosage: 1 TABLETS, BEDTIME AT 11PM
     Route: 065
  29. CIALIS [Concomitant]
     Active Substance: TADALAFIL
     Indication: PRODUCT USED FOR UNKNOWN INDICATION
     Dosage: UNK
     Route: 065
  30. CLONAZEPAM. [Suspect]
     Active Substance: CLONAZEPAM
     Indication: ANXIETY
  31. NIZORAL [Concomitant]
     Active Substance: KETOCONAZOLE
     Indication: ECZEMA
     Dosage: RUB ON AFFECTED AREA AS NEEDED
     Route: 065
  32. FLOMAX [Concomitant]
     Active Substance: TAMSULOSIN HYDROCHLORIDE
     Indication: DYSURIA
  33. COQ10 [ASCORBIC ACID;BETACAROTENE;CUPRIC OXIDE;MANGANESE SULFATE;SELEN [Concomitant]
     Indication: SUPPLEMENTATION THERAPY
     Dosage: 200 MG, 1X/DAY, (COULD GO UP TO 2) AT 12 PM
     Route: 065
  34. BETAMETHASONE CLOTRIMAZOLE [Concomitant]
     Active Substance: BETAMETHASONE DIPROPIONATE\CLOTRIMAZOLE
     Indication: PRODUCT USED FOR UNKNOWN INDICATION
     Dosage: RUB ON AREA TWICE DAILY
     Route: 065

REACTIONS (20)
  - Ocular discomfort [Recovered/Resolved]
  - Hangover [Recovering/Resolving]
  - Restlessness [Unknown]
  - Peripheral swelling [Recovering/Resolving]
  - Fatigue [Unknown]
  - Poor quality sleep [Recovering/Resolving]
  - Loss of personal independence in daily activities [Unknown]
  - Unevaluable event [Unknown]
  - Dystonia [Unknown]
  - Dyskinesia [Unknown]
  - Insomnia [Recovering/Resolving]
  - Sleep terror [Unknown]
  - Hallucinations, mixed [Recovering/Resolving]
  - Snoring [Unknown]
  - Speech disorder [Unknown]
  - Nephrolithiasis [Recovered/Resolved]
  - Hyperhidrosis [Unknown]
  - Paranoia [Unknown]
  - Weight increased [Unknown]
  - Varicose vein [Unknown]

NARRATIVE: CASE EVENT DATE: 201501
